FAERS Safety Report 8194147-4 (Version None)
Quarter: 2012Q1

REPORT INFORMATION
  Report Type: 
  Country: None (occurrence: None)
  Receive Date: 20120308
  Receipt Date: 20120228
  Transmission Date: 20120608
  Serious: Yes (Disabling, Other)
  Sender: FDA-Public Use
  Company Number: US-ALEXION-A201200340

PATIENT
  Sex: Female

DRUGS (4)
  1. SOLIRIS [Suspect]
     Indication: PAROXYSMAL NOCTURNAL HAEMOGLOBINURIA
     Dosage: 600 MG, QW
     Route: 042
     Dates: start: 20080601
  2. SOLIRIS [Suspect]
     Dosage: 900 MG, Q2W
     Route: 042
     Dates: start: 20080701
  3. SOLIRIS [Suspect]
     Dosage: 900 MG, Q 12 DAYS
     Route: 042
     Dates: start: 20110118
  4. SOLIRIS [Suspect]
     Dosage: 900 UNK, Q 3 WEEKS
     Route: 042
     Dates: start: 20101101

REACTIONS (3)
  - FACIAL NEURALGIA [None]
  - DEAFNESS BILATERAL [None]
  - VIRAL INFECTION [None]
